FAERS Safety Report 5832439-1 (Version None)
Quarter: 2008Q3

REPORT INFORMATION
  Report Type: 
  Country: None (occurrence: None)
  Receive Date: 20080804
  Receipt Date: 20080731
  Transmission Date: 20090109
  Serious: Yes (Life-Threatening)
  Sender: FDA-Public Use
  Company Number: JP-SANOFI-SYNTHELABO-F01200801256

PATIENT
  Sex: Female

DRUGS (6)
  1. DECADRON [Concomitant]
     Dates: start: 20070823, end: 20080212
  2. KYTRIL [Concomitant]
     Dates: start: 20070823, end: 20080212
  3. ISOVORIN [Suspect]
     Dosage: UNK
     Route: 041
     Dates: start: 20080311, end: 20080312
  4. FLUOROURACIL [Suspect]
     Dosage: UNK
     Route: 041
     Dates: start: 20080311, end: 20080312
  5. AVASTIN [Suspect]
     Route: 041
     Dates: start: 20080212, end: 20080212
  6. ELPLAT [Suspect]
     Indication: COLON CANCER RECURRENT
     Dosage: UNK
     Route: 041
     Dates: start: 20071030, end: 20071030

REACTIONS (1)
  - SMALL INTESTINAL PERFORATION [None]
